FAERS Safety Report 8858705 (Version 1)
Quarter: 2012Q4

REPORT INFORMATION
  Report Type: 
  Country: US (occurrence: US)
  Receive Date: 20121024
  Receipt Date: 20121024
  Transmission Date: 20130627
  Serious: No
  Sender: FDA-Public Use
  Company Number: US-BAYER-2012-107387

PATIENT
  Age: 21 Year
  Sex: Female

DRUGS (3)
  1. MIRENA [Suspect]
     Dosage: 20 mcg/24hr, CONT
     Route: 015
     Dates: start: 20120912, end: 20120917
  2. LIDOCAINE [Suspect]
     Dosage: UNK
     Dates: start: 20120912
  3. LIDOCAINE [Suspect]
     Indication: SUNBURN
     Dosage: UNK
     Route: 061
     Dates: start: 20120919

REACTIONS (6)
  - Abdominal pain [None]
  - Abdominal distension [None]
  - Sunburn [None]
  - Erythema [None]
  - Eye swelling [None]
  - Drug hypersensitivity [None]
